FAERS Safety Report 21758192 (Version 1)
Quarter: 2022Q4

REPORT INFORMATION
  Report Type: Spontaneous
  Country: TR (occurrence: TR)
  Receive Date: 20221221
  Receipt Date: 20221221
  Transmission Date: 20230113
  Serious: Yes (Other)
  Sender: FDA-Public Use
  Company Number: TR-002147023-NVSC2022TR294161

PATIENT
  Age: 60 Year
  Sex: Male

DRUGS (1)
  1. AZARGA [Suspect]
     Active Substance: BRINZOLAMIDE\TIMOLOL MALEATE
     Indication: Glaucoma
     Dosage: UNK (USING FOR 25 YEARS)
     Route: 065

REACTIONS (2)
  - Blindness [Unknown]
  - Product availability issue [Unknown]
